FAERS Safety Report 25571368 (Version 1)
Quarter: 2025Q3

REPORT INFORMATION
  Report Type: Spontaneous
  Country: EU (occurrence: EU)
  Receive Date: 20250717
  Receipt Date: 20250717
  Transmission Date: 20251020
  Serious: Yes (Other)
  Sender: MYLAN
  Company Number: EU-ELI_LILLY_AND_COMPANY-ES202410009826

PATIENT
  Age: 85 Year
  Sex: Female

DRUGS (11)
  1. LOPERAMIDE [Suspect]
     Active Substance: LOPERAMIDE
     Indication: Diarrhoea
  2. LOPERAMIDE [Suspect]
     Active Substance: LOPERAMIDE
     Indication: Anal incontinence
  3. DULOXETINE [Suspect]
     Active Substance: DULOXETINE
     Indication: Depression
  4. DULOXETINE [Suspect]
     Active Substance: DULOXETINE
     Indication: Colitis microscopic
  5. LOVASTATIN [Suspect]
     Active Substance: LOVASTATIN
     Indication: Dyslipidaemia
  6. BUDESONIDE [Suspect]
     Active Substance: BUDESONIDE
     Indication: Colitis microscopic
  7. METFORMIN [Concomitant]
     Active Substance: METFORMIN HYDROCHLORIDE
     Indication: Type 2 diabetes mellitus
  8. DAPAGLIFLOZIN [Concomitant]
     Active Substance: DAPAGLIFLOZIN
     Indication: Type 2 diabetes mellitus
  9. TORSEMIDE [Concomitant]
     Active Substance: TORSEMIDE
     Indication: Product used for unknown indication
  10. LOVASTATIN [Concomitant]
     Active Substance: LOVASTATIN
     Indication: Product used for unknown indication
  11. ACENOCOUMAROL [Concomitant]
     Active Substance: ACENOCOUMAROL
     Indication: Product used for unknown indication

REACTIONS (7)
  - Colitis microscopic [Recovered/Resolved]
  - Drug ineffective [Unknown]
  - Cognitive disorder [Unknown]
  - Urge incontinence [Unknown]
  - Anal incontinence [Recovered/Resolved]
  - Weight decreased [Recovered/Resolved]
  - Diarrhoea [Recovered/Resolved]

NARRATIVE: CASE EVENT DATE: 20210101
